FAERS Safety Report 8105549-6 (Version None)
Quarter: 2012Q1

REPORT INFORMATION
  Report Type: 
  Country: None (occurrence: None)
  Receive Date: 20120201
  Receipt Date: 20120127
  Transmission Date: 20120608
  Serious: No
  Sender: FDA-Public Use
  Company Number: US-PFIZER INC-2012023361

PATIENT
  Sex: Female
  Weight: 90.703 kg

DRUGS (7)
  1. LYRICA [Suspect]
     Indication: PAIN
     Dosage: 75 MG, 2X/DAY
     Route: 048
     Dates: start: 20120101
  2. AMOXICILLIN AND CLAVULANATE POTASSIUM [Suspect]
     Indication: RHINORRHOEA
  3. AMOXICILLIN AND CLAVULANATE POTASSIUM [Suspect]
     Indication: PRODUCTIVE COUGH
  4. HYDROCODONE [Concomitant]
     Indication: PAIN
     Dosage: 325 MG
  5. AMOXICILLIN AND CLAVULANATE POTASSIUM [Suspect]
     Indication: COUGH
     Dosage: 875/125 MG, 2X/DAY
     Dates: start: 20120101
  6. CITALOPRAM [Concomitant]
     Dosage: 40 MG, DAILY
     Route: 048
  7. AMOXICILLIN AND CLAVULANATE POTASSIUM [Suspect]
     Indication: OROPHARYNGEAL PAIN

REACTIONS (6)
  - OROPHARYNGEAL PAIN [None]
  - HYPERHIDROSIS [None]
  - RHINORRHOEA [None]
  - DRUG INEFFECTIVE [None]
  - COUGH [None]
  - PRODUCTIVE COUGH [None]
